FAERS Safety Report 5956357-3 (Version None)
Quarter: 2008Q4

REPORT INFORMATION
  Report Type: 
  Country: None (occurrence: None)
  Receive Date: 20081118
  Receipt Date: 20081105
  Transmission Date: 20090506
  Serious: Yes (Hospitalization)
  Sender: FDA-Public Use
  Company Number: US-KINGPHARMUSA00001-K200801309

PATIENT
  Age: 61 Year
  Sex: Male

DRUGS (13)
  1. THROMBIN NOS [Suspect]
     Indication: HAEMOSTASIS
     Dosage: 20000 U, SINGLE
     Route: 061
     Dates: start: 20080501, end: 20080501
  2. THROMBIN NOS [Suspect]
     Dosage: 20000 U, SINGLE
     Route: 061
     Dates: start: 20080101, end: 20080101
  3. ASPIRIN [Concomitant]
  4. PLAVIX [Concomitant]
     Dosage: UNK
     Dates: end: 20080101
  5. SIMVASTATIN [Concomitant]
  6. ESOMEPRAZOLE MAGNESIUM [Concomitant]
  7. TOPROL-XL [Concomitant]
  8. LACEROL ^LAXORAL^ [Concomitant]
  9. MORPHINE [Concomitant]
  10. HEPARIN [Suspect]
     Dosage: UNK
     Dates: start: 20080101, end: 20080101
  11. COUMADIN [Suspect]
     Indication: ANTICOAGULANT THERAPY
     Dosage: 2.5 MG
     Dates: start: 20080101, end: 20080101
  12. COUMADIN [Suspect]
     Dosage: 1 MG, UNK
     Dates: start: 20080101, end: 20080101
  13. LOVENOX [Concomitant]
     Indication: ANTICOAGULANT THERAPY

REACTIONS (8)
  - ABDOMINAL MASS [None]
  - ABDOMINAL PAIN LOWER [None]
  - BLOOD THROMBIN ABNORMAL [None]
  - COAGULOPATHY [None]
  - FACTOR V INHIBITION [None]
  - FLANK PAIN [None]
  - HAEMORRHAGE [None]
  - RETROPERITONEAL HAEMATOMA [None]
